FAERS Safety Report 6804599-7 (Version None)
Quarter: 2010Q2

REPORT INFORMATION
  Report Type: 
  Country: None (occurrence: None)
  Receive Date: 20100628
  Receipt Date: 20070410
  Transmission Date: 20101027
  Serious: No
  Sender: FDA-Public Use
  Company Number: US-PFIZER INC-2007029171

PATIENT
  Sex: Female
  Weight: 92.08 kg

DRUGS (5)
  1. XALATAN [Suspect]
     Indication: GLAUCOMA
     Dates: start: 20050101, end: 20070410
  2. SITAGLIPTIN [Interacting]
     Indication: DIABETES MELLITUS
     Dates: start: 20070321, end: 20070409
  3. METFORMIN HCL [Concomitant]
  4. GLIMEPIRIDE [Concomitant]
  5. CYCLOBENZAPRINE [Concomitant]

REACTIONS (8)
  - ANGINA PECTORIS [None]
  - ASTHENIA [None]
  - DARK CIRCLES UNDER EYES [None]
  - DRUG INTERACTION [None]
  - DYSPNOEA [None]
  - EYE SWELLING [None]
  - MUSCLE SPASMS [None]
  - NAUSEA [None]
